FAERS Safety Report 20600259 (Version 1)
Quarter: 2022Q1

REPORT INFORMATION
  Report Type: Other
  Country: DE (occurrence: None)
  Receive Date: 20220316
  Receipt Date: 20220316
  Transmission Date: 20220423
  Serious: No
  Sender: FDA-Public Use
  Company Number: DE-ROCHE-2992820

PATIENT
  Age: 37 Year
  Sex: Female

DRUGS (7)
  1. RITUXIMAB [Suspect]
     Active Substance: RITUXIMAB
     Indication: Neuromyelitis optica spectrum disorder
     Route: 042
     Dates: start: 20211217
  2. ENSPRYNG [Suspect]
     Active Substance: SATRALIZUMAB-MWGE
     Indication: Neuromyelitis optica spectrum disorder
     Route: 042
     Dates: start: 20160301
  3. RIZATRIPTAN [Concomitant]
     Active Substance: RIZATRIPTAN
  4. DALFAMPRIDINE [Concomitant]
     Active Substance: DALFAMPRIDINE
  5. PROPRANOLOL HYDROCHLORIDE [Concomitant]
     Active Substance: PROPRANOLOL HYDROCHLORIDE
  6. TIZANIDINE [Concomitant]
     Active Substance: TIZANIDINE
  7. IBUPROFEN [Concomitant]
     Active Substance: IBUPROFEN

REACTIONS (19)
  - Off label use [Unknown]
  - Migraine [Unknown]
  - Muscular weakness [Unknown]
  - Peroneal nerve palsy [Unknown]
  - Asthenia [Unknown]
  - Blood immunoglobulin G decreased [Unknown]
  - B-lymphocyte count decreased [Unknown]
  - B-lymphocyte count increased [Unknown]
  - Muscle spasticity [Unknown]
  - Nasopharyngitis [Recovered/Resolved]
  - Alopecia [Unknown]
  - Madarosis [Unknown]
  - Infection susceptibility increased [Unknown]
  - Dry skin [Unknown]
  - Sensitive skin [Unknown]
  - Dry skin [Unknown]
  - Polyp [Unknown]
  - Ill-defined disorder [Unknown]
  - Deposit eye [Unknown]

NARRATIVE: CASE EVENT DATE: 20160301
